FAERS Safety Report 7198045-4 (Version None)
Quarter: 2010Q4

REPORT INFORMATION
  Report Type: 
  Country: None (occurrence: None)
  Receive Date: 20101227
  Receipt Date: 20101215
  Transmission Date: 20110411
  Serious: Yes (Other)
  Sender: FDA-Public Use
  Company Number: US-ROCHE-749640

PATIENT

DRUGS (19)
  1. PEGASYS [Suspect]
     Indication: HEPATITIS C
     Route: 030
     Dates: start: 20100301
  2. RIBAVIRIN [Suspect]
     Indication: HEPATITIS C
     Route: 048
     Dates: start: 20100301
  3. EPOGEN [Suspect]
     Indication: RENAL FAILURE CHRONIC
     Route: 042
     Dates: start: 20070101
  4. EPOGEN [Suspect]
     Route: 042
     Dates: end: 20100928
  5. NEURONTIN [Concomitant]
     Dates: start: 20100113
  6. AMLODIPINE [Concomitant]
     Dates: start: 20100113
  7. ZEMPLAR [Concomitant]
  8. BENTYL [Concomitant]
  9. DIALYVITE [Concomitant]
  10. LABETALOL HCL [Concomitant]
  11. PRILOSEC [Concomitant]
  12. RENVELA [Concomitant]
  13. CIALIS [Concomitant]
  14. TYLENOL W/ CODEINE [Concomitant]
  15. SENSIPAR [Concomitant]
  16. ATARAX [Concomitant]
  17. AMBIEN [Concomitant]
  18. MIRAPEX [Concomitant]
  19. DIOVAN [Concomitant]

REACTIONS (10)
  - ANAEMIA [None]
  - CARDIAC MURMUR [None]
  - DERMAL CYST [None]
  - FOLLICULITIS [None]
  - HYPERLIPIDAEMIA [None]
  - HYPERPARATHYROIDISM SECONDARY [None]
  - MENISCUS LESION [None]
  - PLATELET COUNT DECREASED [None]
  - WEIGHT DECREASED [None]
  - WHITE BLOOD CELL COUNT DECREASED [None]
